FAERS Safety Report 13981962 (Version 1)
Quarter: 2017Q3

REPORT INFORMATION
  Report Type: Spontaneous
  Country: US (occurrence: None)
  Receive Date: 20170915
  Receipt Date: 20170915
  Transmission Date: 20171128
  Serious: Yes (Hospitalization)
  Sender: FDA-Public Use
  Company Number: None

PATIENT
  Age: 51 Year
  Sex: Male
  Weight: 77.57 kg

DRUGS (1)
  1. VITAMIN D3 [Suspect]
     Active Substance: CHOLECALCIFEROL
     Indication: VITAMIN D DEFICIENCY
     Route: 048
     Dates: start: 20170720

REACTIONS (7)
  - Gait disturbance [None]
  - Arthralgia [None]
  - Haemoglobin decreased [None]
  - Pyrexia [None]
  - Thrombocytopenia [None]
  - Feeling abnormal [None]
  - Neutropenia [None]

NARRATIVE: CASE EVENT DATE: 20170911
